FAERS Safety Report 22370747 (Version 1)
Quarter: 2023Q2

REPORT INFORMATION
  Report Type: Report from Study
  Country: BR (occurrence: BR)
  Receive Date: 20230526
  Receipt Date: 20230526
  Transmission Date: 20230721
  Serious: Yes (Other)
  Sender: FDA-Public Use
  Company Number: BR-002147023-NVSC2023BR118001

PATIENT
  Sex: Female
  Weight: 72 kg

DRUGS (1)
  1. ZOLPIDEM [Suspect]
     Active Substance: ZOLPIDEM TARTRATE
     Indication: Insomnia
     Dosage: 1 DOSAGE FORM, QD
     Route: 048
     Dates: start: 2010

REACTIONS (4)
  - Breast cancer [Recovered/Resolved]
  - Metastases to liver [Recovered/Resolved]
  - Depression [Not Recovered/Not Resolved]
  - Thyroiditis [Recovered/Resolved]

NARRATIVE: CASE EVENT DATE: 20100101
